FAERS Safety Report 9735856 (Version 2)
Quarter: 2015Q3

REPORT INFORMATION
  Report Type: Spontaneous
  Country: US (occurrence: US)
  Receive Date: 20131206
  Receipt Date: 20150804
  Transmission Date: 20151125
  Serious: No
  Sender: FDA-Public Use
  Company Number: US-GILEAD-2009-0024075

PATIENT
  Age: 66 Year
  Sex: Female
  Weight: 99.79 kg

DRUGS (17)
  1. IRON [Concomitant]
     Active Substance: IRON
  2. LETAIRIS [Suspect]
     Active Substance: AMBRISENTAN
     Indication: PULMONARY ARTERIAL HYPERTENSION
     Route: 048
     Dates: start: 20090820
  3. CARVEDILOL. [Concomitant]
     Active Substance: CARVEDILOL
  4. SYMBICORT [Concomitant]
     Active Substance: BUDESONIDE\FORMOTEROL FUMARATE DIHYDRATE
  5. LASIX [Concomitant]
     Active Substance: FUROSEMIDE
  6. HYDRALAZINE [Concomitant]
     Active Substance: HYDRALAZINE HYDROCHLORIDE
  7. CARDIZEM CD [Concomitant]
     Active Substance: DILTIAZEM HYDROCHLORIDE
  8. LIPITOR [Concomitant]
     Active Substance: ATORVASTATIN CALCIUM
  9. PROTONIX [Concomitant]
     Active Substance: PANTOPRAZOLE SODIUM
  10. MUCINEX [Concomitant]
     Active Substance: GUAIFENESIN
  11. ASPIRIN. [Concomitant]
     Active Substance: ASPIRIN
  12. VITAMIN B12 [Concomitant]
     Active Substance: CYANOCOBALAMIN
  13. ALBUTEROL. [Concomitant]
     Active Substance: ALBUTEROL
  14. ZOLOFT [Concomitant]
     Active Substance: SERTRALINE HYDROCHLORIDE
  15. LANTUS [Concomitant]
     Active Substance: INSULIN GLARGINE
  16. CLONIDINE HCL [Concomitant]
     Active Substance: CLONIDINE HYDROCHLORIDE
  17. SPIRIVA [Concomitant]
     Active Substance: TIOTROPIUM BROMIDE MONOHYDRATE

REACTIONS (6)
  - Abdominal distension [Unknown]
  - Dyspnoea [Unknown]
  - Feeling abnormal [Unknown]
  - Joint swelling [Unknown]
  - Headache [Unknown]
  - Peripheral swelling [Unknown]
